FAERS Safety Report 20153255 (Version 2)
Quarter: 2022Q1

REPORT INFORMATION
  Report Type: Report from Study
  Country: US (occurrence: US)
  Receive Date: 20211206
  Receipt Date: 20220201
  Transmission Date: 20220423
  Serious: Yes (Hospitalization)
  Sender: FDA-Public Use
  Company Number: US-JNJFOC-20211202808

PATIENT
  Age: 50 Year
  Sex: Female
  Weight: 81.1 kg

DRUGS (23)
  1. MACITENTAN [Suspect]
     Active Substance: MACITENTAN
     Indication: Pulmonary arterial hypertension
     Route: 048
     Dates: start: 20211027, end: 20211122
  2. CETIRIZINE [Concomitant]
     Active Substance: CETIRIZINE HYDROCHLORIDE
     Indication: Rhinitis allergic
     Route: 048
     Dates: start: 19980101
  3. VITAMIN E [Concomitant]
     Active Substance: .ALPHA.-TOCOPHEROL
     Indication: Vitamin supplementation
     Dosage: DOSE: 100, NO UNITS PROVIDED
     Route: 048
     Dates: start: 20100101
  4. VALACYCLOVIR [Concomitant]
     Active Substance: VALACYCLOVIR HYDROCHLORIDE
     Indication: Oral herpes
     Route: 048
     Dates: start: 20130101
  5. CHOLECALCIFEROL [Concomitant]
     Active Substance: CHOLECALCIFEROL
     Indication: Vitamin supplementation
     Dosage: DOSE: 1000, NO UNITS PROVIDED
     Route: 048
     Dates: start: 20140701
  6. SPIRONOLACTONE [Concomitant]
     Active Substance: SPIRONOLACTONE
     Indication: Pulmonary arterial hypertension
     Route: 048
     Dates: start: 20151001, end: 20211126
  7. TORSEMIDE [Concomitant]
     Active Substance: TORSEMIDE
     Indication: Pulmonary arterial hypertension
     Route: 048
     Dates: start: 20151001
  8. FLUTICASONE [Concomitant]
     Active Substance: FLUTICASONE
     Indication: Rhinitis allergic
     Route: 045
     Dates: start: 20151101
  9. SIMETHICONE (DIMETHICONE) [Concomitant]
     Active Substance: DIMETHICONE
     Indication: Gastrooesophageal reflux disease
     Route: 048
     Dates: start: 20161018
  10. MELATONIN [Concomitant]
     Active Substance: MELATONIN
     Indication: Insomnia
     Route: 048
     Dates: start: 20170101
  11. POTASSIUM CHLORIDE [Concomitant]
     Active Substance: POTASSIUM CHLORIDE
     Indication: Hypertension
     Route: 048
     Dates: start: 20180125
  12. XIIDRA [Concomitant]
     Active Substance: LIFITEGRAST
     Indication: Rhinitis allergic
     Route: 047
     Dates: start: 20180301
  13. SELEXIPAG [Concomitant]
     Active Substance: SELEXIPAG
     Indication: Pulmonary arterial hypertension
     Route: 048
     Dates: start: 20181101
  14. PREGABALIN [Concomitant]
     Active Substance: PREGABALIN
     Indication: Foot fracture
     Route: 048
     Dates: start: 20210701
  15. ALBUTEROL [Concomitant]
     Active Substance: ALBUTEROL
     Indication: Allergic respiratory symptom
     Route: 055
     Dates: start: 20211008
  16. MUCINEX [Concomitant]
     Active Substance: GUAIFENESIN
     Indication: Allergic respiratory symptom
     Route: 048
     Dates: start: 20211012
  17. DOXYCYCLINE [Concomitant]
     Active Substance: DOXYCYCLINE
     Indication: Acute sinusitis
     Route: 048
     Dates: start: 20211109, end: 20211119
  18. METOLAZONE [Concomitant]
     Active Substance: METOLAZONE
     Indication: Hypervolaemia
     Route: 048
     Dates: start: 20211110, end: 20211124
  19. FLUCONAZOLE [Concomitant]
     Active Substance: FLUCONAZOLE
     Indication: Prophylaxis
     Route: 048
     Dates: start: 20211112, end: 20211112
  20. ONDANSETRON [Concomitant]
     Active Substance: ONDANSETRON
     Indication: Vomiting
     Route: 048
     Dates: start: 20211124, end: 20211128
  21. ONDANSETRON [Concomitant]
     Active Substance: ONDANSETRON
     Indication: Nausea
  22. SODIUM CHLORIDE [Concomitant]
     Active Substance: SODIUM CHLORIDE
     Indication: Hyponatraemia
     Dosage: 0.9 DF
     Route: 042
     Dates: start: 20211126, end: 20211130
  23. MORPHINE [Concomitant]
     Active Substance: MORPHINE
     Indication: Pancreatitis acute
     Route: 042
     Dates: start: 20211126, end: 20211130

REACTIONS (1)
  - Pancreatitis acute [Recovered/Resolved]

NARRATIVE: CASE EVENT DATE: 20211126
